FAERS Safety Report 15846531 (Version 1)
Quarter: 2019Q1

REPORT INFORMATION
  Report Type: Report from Study
  Country: TW (occurrence: TW)
  Receive Date: 20190120
  Receipt Date: 20190120
  Transmission Date: 20190417
  Serious: Yes (Other)
  Sender: FDA-Public Use
  Company Number: TW-UCBSA-2018029641

PATIENT
  Age: 41 Year
  Sex: Female

DRUGS (15)
  1. BOKEY EMC [Concomitant]
     Indication: VASCULAR PAIN
  2. BOKEY EMC [Concomitant]
     Indication: HEADACHE
  3. SALAZINE [Concomitant]
     Active Substance: SULFASALAZINE
     Indication: PROPHYLAXIS
  4. BOKEY EMC [Concomitant]
     Indication: TOOTHACHE
  5. BOKEY EMC [Concomitant]
     Indication: ANTICOAGULANT THERAPY
  6. ACETAMINOPHEN. [Concomitant]
     Active Substance: ACETAMINOPHEN
     Indication: ANALGESIC THERAPY
     Dosage: 500 MG, AS NEEDED (PRN)
     Route: 048
     Dates: start: 20170620
  7. BOKEY EMC [Concomitant]
     Indication: RHEUMATIC FEVER
  8. BOKEY EMC [Concomitant]
     Indication: PYREXIA
  9. ACETAMINOPHEN. [Concomitant]
     Active Substance: ACETAMINOPHEN
     Indication: ANTIPYRESIS
  10. BOKEY EMC [Concomitant]
     Indication: MYALGIA
     Dosage: 100 MG, ONCE DAILY (QD)
     Route: 048
     Dates: start: 20170720
  11. CERTOLIZUMAB PEGOL [Suspect]
     Active Substance: CERTOLIZUMAB PEGOL
     Indication: PRODUCT USED FOR UNKNOWN INDICATION
     Dosage: UNK
  12. BOKEY EMC [Concomitant]
     Indication: BURSITIS
  13. BOKEY EMC [Concomitant]
     Indication: NASOPHARYNGITIS
  14. SALAZINE [Concomitant]
     Active Substance: SULFASALAZINE
     Indication: URINARY TRACT INFECTION
     Dosage: 500 MG, 2X/DAY (BID)
     Route: 048
     Dates: start: 20170620
  15. BOKEY EMC [Concomitant]
     Indication: ARTHRITIS

REACTIONS (3)
  - Premature delivery [Unknown]
  - Twin pregnancy [Unknown]
  - Pregnancy [Unknown]

NARRATIVE: CASE EVENT DATE: 2018
